FAERS Safety Report 15585822 (Version 1)
Quarter: 2018Q4

REPORT INFORMATION
  Report Type: Report from Study
  Country: None (occurrence: DE)
  Receive Date: 20181105
  Receipt Date: 20181105
  Transmission Date: 20190205
  Serious: Yes (Other)
  Sender: FDA-Public Use
  Company Number: DE-BIOVITRUM-2018DE1286

PATIENT
  Sex: Male

DRUGS (2)
  1. ORFADIN [Suspect]
     Active Substance: NITISINONE
     Route: 048
     Dates: start: 20171020
  2. ORFADIN [Suspect]
     Active Substance: NITISINONE
     Indication: TYROSINAEMIA
     Route: 048
     Dates: start: 20161029, end: 20171020

REACTIONS (6)
  - Cognitive disorder [Unknown]
  - Condition aggravated [Unknown]
  - Renal impairment [Unknown]
  - Hepatic function abnormal [Unknown]
  - Alpha 1 foetoprotein increased [Unknown]
  - Amino acid level decreased [Unknown]
